FAERS Safety Report 13752127 (Version 2)
Quarter: 2019Q3

REPORT INFORMATION
  Report Type: Spontaneous
  Country: SE (occurrence: SE)
  Receive Date: 20170713
  Receipt Date: 20190820
  Transmission Date: 20191004
  Serious: Yes (Death, Life-Threatening)
  Sender: FDA-Public Use
  Company Number: SE-TEVA-785603ISR

PATIENT
  Sex: Male

DRUGS (1)
  1. LAMOTRIGINE. [Suspect]
     Active Substance: LAMOTRIGINE
     Route: 064

REACTIONS (5)
  - Aplasia cutis congenita [Fatal]
  - Microcephaly [Fatal]
  - Encephalocele [Fatal]
  - Foetal exposure during pregnancy [Fatal]
  - Skull malformation [Fatal]
